FAERS Safety Report 9856551 (Version 2)
Quarter: 2014Q3

REPORT INFORMATION
  Report Type: Report from Study
  Country: KR (occurrence: KR)
  Receive Date: 20140130
  Receipt Date: 20140724
  Transmission Date: 20150326
  Serious: Yes (Death, Life-Threatening)
  Sender: FDA-Public Use
  Company Number: KR-OTSUKA-JP-2014-10326

PATIENT
  Age: 41 Year
  Sex: Male
  Weight: 75.4 kg

DRUGS (3)
  1. BUSULFEX [Suspect]
     Active Substance: BUSULFAN
     Indication: PLASMA CELL MYELOMA
     Dosage: 3.2 MG/KG, QD
     Route: 042
     Dates: start: 20130309, end: 20130311
  2. BORTEZOMIB [Suspect]
     Active Substance: BORTEZOMIB
     Indication: PLASMA CELL MYELOMA
     Dosage: 1.3 UNK, QD
     Route: 042
     Dates: start: 20130308, end: 20130315
  3. MELPHALAN [Suspect]
     Active Substance: MELPHALAN
     Indication: PLASMA CELL MYELOMA
     Dosage: 140 MG/M2, DAILY DOSE
     Route: 042
     Dates: start: 20130312, end: 20130312

REACTIONS (2)
  - Pneumonia [Fatal]
  - Pulmonary haemorrhage [Recovered/Resolved]

NARRATIVE: CASE EVENT DATE: 20130404
